FAERS Safety Report 5265290-4 (Version None)
Quarter: 2007Q1

REPORT INFORMATION
  Report Type: 
  Country: None (occurrence: None)
  Receive Date: 20061213
  Receipt Date: 20040312
  Transmission Date: 20070707
  Serious: Yes (Hospitalization)
  Sender: FDA-Public Use
  Company Number: 2004UW04777

PATIENT

DRUGS (2)
  1. IRESSA [Suspect]
     Indication: METASTASES TO LUNG
  2. IRESSA [Suspect]
     Indication: OESOPHAGEAL CARCINOMA

REACTIONS (1)
  - INTERSTITIAL LUNG DISEASE [None]
